FAERS Safety Report 18337907 (Version 1)
Quarter: 2020Q4

REPORT INFORMATION
  Report Type: Spontaneous
  Country: US (occurrence: US)
  Receive Date: 20201002
  Receipt Date: 20201002
  Transmission Date: 20210113
  Serious: No
  Sender: FDA-Public Use
  Company Number: US-BAYER-2020-211183

PATIENT
  Sex: Female

DRUGS (2)
  1. MIRENA [Suspect]
     Active Substance: LEVONORGESTREL
     Indication: CONTRACEPTION
     Dosage: 20 ?G PER DAY CONTINUOUSLY
     Route: 015
     Dates: start: 2019
  2. MIRENA [Suspect]
     Active Substance: LEVONORGESTREL
     Indication: MENORRHAGIA

REACTIONS (3)
  - Menometrorrhagia [Not Recovered/Not Resolved]
  - Drug ineffective [None]
  - Stress [None]

NARRATIVE: CASE EVENT DATE: 2019
